FAERS Safety Report 20200958 (Version 2)
Quarter: 2021Q4

REPORT INFORMATION
  Report Type: Spontaneous
  Country: US (occurrence: None)
  Receive Date: 20211217
  Receipt Date: 20211223
  Transmission Date: 20220303
  Serious: Yes (Other)
  Sender: FDA-Public Use
  Company Number: 2021A867208

PATIENT
  Age: 48 Year

DRUGS (2)
  1. CALQUENCE [Suspect]
     Active Substance: ACALABRUTINIB
     Indication: Breast cancer
     Dosage: UNKNOWN UNKNOWN
     Route: 048
  2. TAMOXIFEN [Suspect]
     Active Substance: TAMOXIFEN
     Dosage: UNKNOWN
     Route: 048

REACTIONS (4)
  - Cervix carcinoma [Unknown]
  - Uterine cancer [Unknown]
  - Thrombosis [Unknown]
  - Glaucoma [Unknown]
